FAERS Safety Report 8042030-7 (Version None)
Quarter: 2011Q4

REPORT INFORMATION
  Report Type: 
  Country: None (occurrence: None)
  Receive Date: 20111202
  Receipt Date: 20110913
  Transmission Date: 20120403
  Serious: No
  Sender: FDA-Public Use
  Company Number: PHEH2011US04623

PATIENT
  Sex: Female

DRUGS (1)
  1. FANAPT [Suspect]
     Dosage: 08 MG, ORAL
     Route: 048
     Dates: start: 20110201

REACTIONS (3)
  - WEIGHT INCREASED [None]
  - ALOPECIA [None]
  - NASAL CONGESTION [None]
